FAERS Safety Report 17355530 (Version 3)
Quarter: 2020Q4

REPORT INFORMATION
  Report Type: Spontaneous
  Country: US (occurrence: US)
  Receive Date: 20200131
  Receipt Date: 20201210
  Transmission Date: 20210113
  Serious: Yes (Hospitalization, Other)
  Sender: FDA-Public Use
  Company Number: US-GILEAD-2020-0448761

PATIENT
  Age: 44 Year
  Sex: Male
  Weight: 77.1 kg

DRUGS (43)
  1. SUSTIVA [Concomitant]
     Active Substance: EFAVIRENZ
  2. HYDRALAZINE [Concomitant]
     Active Substance: HYDRALAZINE HYDROCHLORIDE
  3. METHYLPREDNISOLONE. [Concomitant]
     Active Substance: METHYLPREDNISOLONE
  4. TAMIFLU [Concomitant]
     Active Substance: OSELTAMIVIR PHOSPHATE
  5. NIFEDIPINE. [Concomitant]
     Active Substance: NIFEDIPINE
  6. DESCOVY [Concomitant]
     Active Substance: EMTRICITABINE\TENOFOVIR ALAFENAMIDE FUMARATE
  7. NORVIR [Concomitant]
     Active Substance: RITONAVIR
  8. COREG [Concomitant]
     Active Substance: CARVEDILOL
  9. NAPROXEN. [Concomitant]
     Active Substance: NAPROXEN
  10. METHYLPRED [Concomitant]
     Active Substance: METHYLPREDNISOLONE
  11. PROMETH VC [PHENYLEPHRINE HYDROCHLORIDE;PROMETHAZINE HYDROCHLORIDE] [Concomitant]
  12. ATRIPLA [Suspect]
     Active Substance: EFAVIRENZ\EMTRICITABINE\TENOFOVIR DISOPROXIL FUMARATE
     Indication: HIV INFECTION
     Dosage: UNK
     Route: 048
     Dates: start: 20071003, end: 20111213
  13. TIVICAY [Concomitant]
     Active Substance: DOLUTEGRAVIR SODIUM
  14. LAMIVUDINE. [Concomitant]
     Active Substance: LAMIVUDINE
  15. VIREAD [Suspect]
     Active Substance: TENOFOVIR DISOPROXIL FUMARATE
     Indication: HIV INFECTION
     Dosage: UNK
     Route: 065
     Dates: start: 2017
  16. PREZISTA [Concomitant]
     Active Substance: DARUNAVIR ETHANOLATE
  17. CIPROFLOXACIN. [Concomitant]
     Active Substance: CIPROFLOXACIN
  18. CYCLOBENZAPRINE. [Concomitant]
     Active Substance: CYCLOBENZAPRINE
  19. HYDROCODONE/ACETAMINOPHEN [Concomitant]
     Active Substance: ACETAMINOPHEN\HYDROCODONE
  20. TRAMADOL. [Concomitant]
     Active Substance: TRAMADOL
  21. HYDROCHLOROTHIAZIDE + LOSARTAN [Concomitant]
     Active Substance: HYDROCHLOROTHIAZIDE\LOSARTAN
  22. MEDROL COMP [Concomitant]
  23. PREZCOBIX [Concomitant]
     Active Substance: COBICISTAT\DARUNAVIR ETHANOLATE
  24. ERGOCALCIFEROL. [Concomitant]
     Active Substance: ERGOCALCIFEROL
  25. CEFTIN [Concomitant]
     Active Substance: CEFUROXIME AXETIL
  26. RETROVIR [Concomitant]
     Active Substance: ZIDOVUDINE
  27. ALBUTEROL HFA [Concomitant]
     Active Substance: ALBUTEROL SULFATE
  28. FUROSEMIDE. [Concomitant]
     Active Substance: FUROSEMIDE
  29. TRUVADA [Suspect]
     Active Substance: EMTRICITABINE\TENOFOVIR DISOPROXIL FUMARATE
     Indication: HIV INFECTION
     Dosage: UNK
     Route: 048
     Dates: start: 20111213, end: 20140812
  30. COMBIVIR [Concomitant]
     Active Substance: LAMIVUDINE\ZIDOVUDINE
  31. TRIZIVIR [Concomitant]
     Active Substance: ABACAVIR SULFATE\LAMIVUDINE\ZIDOVUDINE
  32. COZAAR [Concomitant]
     Active Substance: LOSARTAN POTASSIUM
  33. CHERATUSSIN AC [Concomitant]
     Active Substance: CODEINE PHOSPHATE\GUAIFENESIN
  34. ALLOPURINOL. [Concomitant]
     Active Substance: ALLOPURINOL
  35. FLAGYL COMP [Concomitant]
  36. LEVAQUIN [Concomitant]
     Active Substance: LEVOFLOXACIN
  37. PREDNISONE. [Concomitant]
     Active Substance: PREDNISONE
  38. SEVELAMER [Concomitant]
     Active Substance: SEVELAMER
  39. TRIUMEQ [Concomitant]
     Active Substance: ABACAVIR SULFATE\DOLUTEGRAVIR SODIUM\LAMIVUDINE
  40. NORVASC [Concomitant]
     Active Substance: AMLODIPINE BESYLATE
  41. LOSARTAN/HCTZ [Concomitant]
     Active Substance: HYDROCHLOROTHIAZIDE\LOSARTAN
  42. RENVELA [Concomitant]
     Active Substance: SEVELAMER CARBONATE
  43. RENA-VITE [Concomitant]
     Active Substance: ASCORBIC ACID\BIOTIN\CALCIUM PANTOTHENATE\CYANOCOBALAMIN\FOLIC ACID\NIACINAMIDE\PYRIDOXINE HYDROCHLORIDE\RIBOFLAVIN\THIAMINE MONONITRATE

REACTIONS (13)
  - Asthenia [Not Recovered/Not Resolved]
  - Apathy [Not Recovered/Not Resolved]
  - Social avoidant behaviour [Not Recovered/Not Resolved]
  - Emotional distress [Not Recovered/Not Resolved]
  - Anxiety [Not Recovered/Not Resolved]
  - Fatigue [Not Recovered/Not Resolved]
  - Chronic kidney disease [Not Recovered/Not Resolved]
  - Pain [Not Recovered/Not Resolved]
  - Acute kidney injury [Recovered/Resolved]
  - Anhedonia [Not Recovered/Not Resolved]
  - Depression [Not Recovered/Not Resolved]
  - Insomnia [Not Recovered/Not Resolved]
  - Economic problem [Not Recovered/Not Resolved]

NARRATIVE: CASE EVENT DATE: 20131005
